FAERS Safety Report 21205523 (Version 1)
Quarter: 2022Q3

REPORT INFORMATION
  Report Type: Spontaneous
  Country: FR (occurrence: FR)
  Receive Date: 20220812
  Receipt Date: 20220812
  Transmission Date: 20221026
  Serious: Yes (Congenital Anomaly, Other)
  Sender: FDA-Public Use
  Company Number: FR-IPCA LABORATORIES LIMITED-IPC-2022-FR-001042

PATIENT

DRUGS (1)
  1. HYDROXYCHLOROQUINE [Suspect]
     Active Substance: HYDROXYCHLOROQUINE
     Indication: Product used for unknown indication
     Dosage: HIGH DOSE
     Route: 064

REACTIONS (7)
  - Hypotonia neonatal [Unknown]
  - Foetal arrhythmia [Unknown]
  - Congenital foot malformation [Unknown]
  - Systemic lupus erythematosus [Unknown]
  - Micropenis [Unknown]
  - Myopathy [Unknown]
  - Foetal exposure during pregnancy [Unknown]
